FAERS Safety Report 9859054 (Version 2)
Quarter: 2018Q1

REPORT INFORMATION
  Report Type: Report from Study
  Country: None (occurrence: CA)
  Receive Date: 20140131
  Receipt Date: 20180206
  Transmission Date: 20180509
  Serious: Yes (Hospitalization, Other)
  Sender: FDA-Public Use
  Company Number: CA-ABBVIE-14P-028-1194442-00

PATIENT
  Age: 52 Year
  Sex: Female
  Weight: 77.18 kg

DRUGS (6)
  1. HUMIRA [Suspect]
     Active Substance: ADALIMUMAB
     Route: 058
  2. SLOW-K [Concomitant]
     Active Substance: POTASSIUM CHLORIDE
     Indication: MINERAL SUPPLEMENTATION
     Route: 048
  3. IRON [Concomitant]
     Active Substance: IRON
     Indication: MINERAL SUPPLEMENTATION
     Route: 048
  4. IMURAN [Concomitant]
     Active Substance: AZATHIOPRINE
     Indication: CROHN^S DISEASE
     Route: 048
  5. HUMIRA [Suspect]
     Active Substance: ADALIMUMAB
     Indication: CROHN^S DISEASE
     Route: 058
     Dates: start: 20130307, end: 20140102
  6. MAGNESIUM [Concomitant]
     Active Substance: MAGNESIUM
     Indication: MINERAL SUPPLEMENTATION
     Route: 048

REACTIONS (3)
  - Nephrolithiasis [Not Recovered/Not Resolved]
  - Malaise [Recovering/Resolving]
  - Renal failure [Recovering/Resolving]

NARRATIVE: CASE EVENT DATE: 201401
